FAERS Safety Report 6577067-8 (Version None)
Quarter: 2010Q1

REPORT INFORMATION
  Report Type: 
  Country: None (occurrence: None)
  Receive Date: 20100210
  Receipt Date: 20100128
  Transmission Date: 20100710
  Serious: Yes (Other)
  Sender: FDA-Public Use
  Company Number: US-BAUSCH-2010BL000467

PATIENT
  Age: 74 Year
  Sex: Male

DRUGS (21)
  1. BESIVANCE [Suspect]
     Indication: ANTIBIOTIC PROPHYLAXIS
     Route: 047
     Dates: start: 20100110, end: 20100118
  2. BESIVANCE [Suspect]
     Indication: OFF LABEL USE
     Route: 047
     Dates: start: 20100110, end: 20100118
  3. BESIVANCE [Suspect]
     Route: 047
     Dates: start: 20100110, end: 20100118
  4. BESIVANCE [Suspect]
     Route: 047
     Dates: start: 20100110, end: 20100118
  5. BESIVANCE [Suspect]
     Route: 047
     Dates: start: 20100110, end: 20100118
  6. BESIVANCE [Suspect]
     Route: 047
     Dates: start: 20100110, end: 20100118
  7. BESIVANCE [Suspect]
     Route: 047
     Dates: start: 20100110, end: 20100118
  8. BESIVANCE [Suspect]
     Route: 047
     Dates: start: 20100110, end: 20100118
  9. DICLOFENAC SODIUM [Suspect]
     Indication: POST PROCEDURAL COMPLICATION
     Route: 047
     Dates: start: 20100110, end: 20100118
  10. DICLOFENAC SODIUM [Suspect]
     Route: 047
     Dates: start: 20100119, end: 20100121
  11. LOTEMAX [Suspect]
     Indication: POST PROCEDURAL COMPLICATION
     Route: 047
     Dates: start: 20100112, end: 20100118
  12. LOTEMAX [Suspect]
     Route: 047
     Dates: start: 20100112, end: 20100118
  13. LOTEMAX [Suspect]
     Route: 047
     Dates: start: 20100119, end: 20100121
  14. COMBIGAN [Suspect]
     Indication: INTRAOCULAR PRESSURE INCREASED
     Route: 047
     Dates: start: 20100113, end: 20100115
  15. NORVASC [Concomitant]
     Indication: HYPERTENSION
  16. ASPIRIN [Concomitant]
     Indication: CARDIAC DISORDER
  17. PLAVIX [Concomitant]
     Indication: CARDIAC DISORDER
  18. ZOCOR [Concomitant]
     Indication: BLOOD CHOLESTEROL INCREASED
  19. METOPROLOL TARTRATE [Concomitant]
     Indication: HYPERTENSION
  20. LASIX [Concomitant]
     Indication: HYPERTENSION
  21. PRINIVIL [Concomitant]
     Indication: HYPERTENSION

REACTIONS (4)
  - CORNEAL EPITHELIUM DEFECT [None]
  - CORNEAL PIGMENTATION [None]
  - INTRAOCULAR PRESSURE INCREASED [None]
  - MYDRIASIS [None]
